FAERS Safety Report 21143919 (Version 2)
Quarter: 2022Q3

REPORT INFORMATION
  Report Type: Spontaneous
  Country: GB (occurrence: GB)
  Receive Date: 20220728
  Receipt Date: 20220928
  Transmission Date: 20221027
  Serious: Yes (Other)
  Sender: FDA-Public Use
  Company Number: GB-NOVARTISPH-PHHY2019GB070424

PATIENT
  Age: 56 Year
  Sex: Female

DRUGS (17)
  1. DOCETAXEL [Suspect]
     Active Substance: DOCETAXEL
     Indication: HER2 positive breast cancer
     Dosage: 96 MG, Q3W, (6 CYCLES PLANNED NUMBER OF CYCLES COMPLETED)
     Route: 042
     Dates: start: 20161116, end: 20170301
  2. TRASTUZUMAB [Suspect]
     Active Substance: TRASTUZUMAB
     Indication: HER2 positive breast cancer
     Dosage: 483 MG, UNK (LOADING DOSE 1 CYCLE PER REGIMEN, DOSE MODIFIED)
     Route: 042
     Dates: start: 20161115, end: 20161115
  3. TRASTUZUMAB [Suspect]
     Active Substance: TRASTUZUMAB
     Dosage: 357 MG, Q3W
     Route: 042
     Dates: start: 20161207, end: 20170301
  4. TRASTUZUMAB [Suspect]
     Active Substance: TRASTUZUMAB
     Dosage: 336 MG, Q3W (MODIFIED DUE TO WEIGHT INCREASE)
     Route: 042
     Dates: start: 20170301, end: 20170301
  5. TRASTUZUMAB [Suspect]
     Active Substance: TRASTUZUMAB
     Dosage: 315 MG, Q3W, (MODIFIED DUE TO WEIGHT INCREASE)
     Route: 042
     Dates: start: 20170322
  6. PERTUZUMAB [Suspect]
     Active Substance: PERTUZUMAB
     Indication: HER2 positive breast cancer
     Dosage: 840 MG, Q3W  (LOADING DOSE)
     Route: 042
     Dates: start: 20161115, end: 20161115
  7. PERTUZUMAB [Suspect]
     Active Substance: PERTUZUMAB
     Dosage: 420 MG, Q3W (18 CYCLES PER REGIMEN)
     Route: 042
     Dates: start: 20161207
  8. FILGRASTIM [Concomitant]
     Active Substance: FILGRASTIM
     Indication: Product used for unknown indication
     Dosage: 300 UG, QD, (FOR 7 DAYS 24 HOURS POST CHEMOTHERAPY)
     Route: 058
     Dates: start: 20161231
  9. OMEPRAZOLE [Concomitant]
     Active Substance: OMEPRAZOLE
     Indication: Product used for unknown indication
     Dosage: 20 MG, QD
     Route: 048
     Dates: start: 20161207
  10. DEXAMETHASONE [Concomitant]
     Active Substance: DEXAMETHASONE
     Indication: Product used for unknown indication
     Dosage: 16 MG, BID , (TO BE TAKEN AT EACH CHEMOTHERAPY CYCLE DAY BEFORE TREATMENT, DAY OF TREATMENT AND DAY
     Route: 048
     Dates: start: 20161229
  11. LOPERAMIDE [Concomitant]
     Active Substance: LOPERAMIDE
     Indication: Product used for unknown indication
     Dosage: 2 MG, QD (AS NECESSARY)
     Route: 048
     Dates: start: 20161207
  12. ADCAL [Concomitant]
     Indication: Product used for unknown indication
     Dosage: 1.5 G, BID
     Route: 048
     Dates: start: 20130613
  13. CHLORPHENIRAMINE MALEATE [Concomitant]
     Active Substance: CHLORPHENIRAMINE MALEATE
     Indication: Product used for unknown indication
     Dosage: 10 MG (PRIOR TO CHEMOTHERAPY TREATMENT)
     Route: 042
     Dates: start: 20161207
  14. HYDROCORTISONE [Concomitant]
     Active Substance: HYDROCORTISONE
     Indication: Product used for unknown indication
     Dosage: 100 MG (PRIOR TO CHEMOTHERAPY TREATMENT)
     Route: 042
     Dates: start: 20161207
  15. LETROZOLE [Concomitant]
     Active Substance: LETROZOLE
     Indication: Product used for unknown indication
     Dosage: 2.5 MG, QD
     Route: 048
     Dates: start: 20130612
  16. METOCLOPRAMIDE [Concomitant]
     Active Substance: METOCLOPRAMIDE
     Indication: Product used for unknown indication
     Dosage: 10 MG, TID
     Route: 048
     Dates: start: 20161207
  17. ONDANSETRON [Concomitant]
     Active Substance: ONDANSETRON
     Indication: Product used for unknown indication
     Dosage: 8 MG (PRIOR TO CHEMOTHERAPY)
     Route: 042
     Dates: start: 20161207

REACTIONS (6)
  - Amnesia [Unknown]
  - Swelling [Recovered/Resolved]
  - Pruritus [Recovered/Resolved]
  - Cerebral small vessel ischaemic disease [Not Recovered/Not Resolved]
  - Syncope [Recovered/Resolved]
  - Presyncope [Recovered/Resolved]

NARRATIVE: CASE EVENT DATE: 20190117
